FAERS Safety Report 5536709-6 (Version None)
Quarter: 2007Q4

REPORT INFORMATION
  Report Type: 
  Country: None (occurrence: None)
  Receive Date: 20071206
  Receipt Date: 20070604
  Transmission Date: 20080405
  Serious: Yes (Hospitalization)
  Sender: FDA-Public Use
  Company Number: US-AMGEN-STX227901

PATIENT
  Sex: Female

DRUGS (2)
  1. ENBREL [Suspect]
     Indication: PSORIATIC ARTHROPATHY
     Route: 058
     Dates: start: 20021218
  2. ENBREL [Suspect]
     Indication: PSORIASIS

REACTIONS (5)
  - ANAEMIA [None]
  - INJECTION SITE PAIN [None]
  - PNEUMONIA [None]
  - PSORIATIC ARTHROPATHY [None]
  - SQUAMOUS CELL CARCINOMA [None]
